FAERS Safety Report 16724837 (Version 2)
Quarter: 2019Q3

REPORT INFORMATION
  Report Type: Report from Study
  Country: PL (occurrence: PL)
  Receive Date: 20190821
  Receipt Date: 20190823
  Transmission Date: 20191005
  Serious: Yes (Death, Hospitalization, Other)
  Sender: FDA-Public Use
  Company Number: PL-SA-2019SA227967

PATIENT
  Age: 16 Year
  Sex: Male

DRUGS (29)
  1. METHYLPREDNISOLONE. [Suspect]
     Active Substance: METHYLPREDNISOLONE
     Dosage: UNK; 28 DAYS AFTER 2ND MSC INFUSION
  2. SIROLIMUS. [Suspect]
     Active Substance: SIROLIMUS
     Dosage: UNK; 14 DAYS AFTER 4TH MSC INFUSION
  3. METHOTREXATE. [Suspect]
     Active Substance: METHOTREXATE
     Indication: PROPHYLAXIS AGAINST GRAFT VERSUS HOST DISEASE
  4. METHYLPREDNISOLONE. [Suspect]
     Active Substance: METHYLPREDNISOLONE
     Indication: CHRONIC GRAFT VERSUS HOST DISEASE
     Dosage: UNK; BEFORE 1ST MSC INFUSION
  5. METHYLPREDNISOLONE. [Suspect]
     Active Substance: METHYLPREDNISOLONE
     Dosage: UNK; BEFORE 2ND MSC INFUSION
  6. BUDESONIDE. [Suspect]
     Active Substance: BUDESONIDE
     Dosage: UNK; 28 DAYS AFTER 3RD MSC INFUSION
     Route: 048
  7. TACROLIMUS. [Suspect]
     Active Substance: TACROLIMUS
     Dosage: UNK; 28 DAYS AFTER 4TH MSC INFUSION
  8. TACROLIMUS. [Suspect]
     Active Substance: TACROLIMUS
     Indication: CHRONIC GRAFT VERSUS HOST DISEASE
     Dosage: UNK; BEFORE 3RD MSC INFUSION
  9. TACROLIMUS. [Suspect]
     Active Substance: TACROLIMUS
     Dosage: UNK; 14DAYS AFTER 4TH MSC INFUSION
  10. CICLOSPORIN [Suspect]
     Active Substance: CYCLOSPORINE
     Indication: CHRONIC GRAFT VERSUS HOST DISEASE
     Dosage: UNK; BEFORE 1ST MSC INFUSION
  11. BUDESONIDE. [Suspect]
     Active Substance: BUDESONIDE
     Dosage: UNK; 14 DAYS AFTER 2 ND MSC INFUSION
     Route: 048
  12. BUDESONIDE. [Suspect]
     Active Substance: BUDESONIDE
     Dosage: UNK; 14 DAYS AFTER 3RD MSC INFUSION
     Route: 048
  13. BUDESONIDE. [Suspect]
     Active Substance: BUDESONIDE
     Dosage: UNK; 14 DAYS AFTER 4TH MSC INFUSION
     Route: 048
  14. ETANERCEPT [Suspect]
     Active Substance: ETANERCEPT
     Indication: CHRONIC GRAFT VERSUS HOST DISEASE
     Dosage: UNK; 28 DAYS AFTER 1ST MSC INFUSION
  15. TACROLIMUS. [Suspect]
     Active Substance: TACROLIMUS
     Dosage: UNK; 28 DAYS AFTER 3RD MSC INFUSION
  16. METHYLPREDNISOLONE. [Suspect]
     Active Substance: METHYLPREDNISOLONE
     Dosage: UNK; 14 DAYS AFTER 1ST MSC INFUSION
  17. ANTI-THYMOCYTE GLOBULIN (RABBIT) NOS [Suspect]
     Active Substance: LAPINE T-LYMPHOCYTE IMMUNE GLOBULIN
     Indication: PROPHYLAXIS AGAINST GRAFT VERSUS HOST DISEASE
  18. BUDESONIDE. [Suspect]
     Active Substance: BUDESONIDE
     Indication: CHRONIC GRAFT VERSUS HOST DISEASE
     Dosage: UNK; BEFORE 2ND MSC INFUSION
     Route: 048
  19. BUDESONIDE. [Suspect]
     Active Substance: BUDESONIDE
     Dosage: UNK; 28 DAYS AFTER 2ND MSC INFUSION
     Route: 048
  20. CICLOSPORIN [Suspect]
     Active Substance: CYCLOSPORINE
     Indication: PROPHYLAXIS AGAINST GRAFT VERSUS HOST DISEASE
     Dosage: UNK, AFTER TRANSPLANT, BEFORE MSC INFUSION
  21. SIROLIMUS. [Suspect]
     Active Substance: SIROLIMUS
     Indication: CHRONIC GRAFT VERSUS HOST DISEASE
     Dosage: UNK; BEFORE 4TH MSC INFUSION
  22. SIROLIMUS. [Suspect]
     Active Substance: SIROLIMUS
     Dosage: UNK; 28 DAYS AFTER 4TH MSC INFUSION
  23. METHYLPREDNISOLONE. [Suspect]
     Active Substance: METHYLPREDNISOLONE
     Dosage: UNK; 14 DAYS AFTER 2ND MSC INFUSION
  24. ETANERCEPT [Suspect]
     Active Substance: ETANERCEPT
     Dosage: UNK; BEFORE 2ND MSC INFUSION
  25. TACROLIMUS. [Suspect]
     Active Substance: TACROLIMUS
     Dosage: UNK; BEFORE 4TH MSC INFUSION
  26. CICLOSPORIN [Suspect]
     Active Substance: CYCLOSPORINE
     Dosage: UNK; 14 DAYS AFTER 1ST MSC INFUSION
  27. TACROLIMUS. [Suspect]
     Active Substance: TACROLIMUS
     Dosage: UNK; 14 DAYS AFTER 3RD MSC INFUSION
  28. METHYLPREDNISOLONE. [Suspect]
     Active Substance: METHYLPREDNISOLONE
     Dosage: UNK; 28 DAYS AFTER 1ST MSC INFUSION
  29. BUDESONIDE. [Suspect]
     Active Substance: BUDESONIDE
     Dosage: UNK; BEFORE 3RD MSC INFUSION
     Route: 048

REACTIONS (2)
  - Pulmonary mycosis [Fatal]
  - Pneumonia adenoviral [Fatal]
